FAERS Safety Report 24283002 (Version 2)
Quarter: 2024Q3

REPORT INFORMATION
  Report Type: Report from Study
  Country: US (occurrence: US)
  Receive Date: 20240904
  Receipt Date: 20240913
  Transmission Date: 20241016
  Serious: No
  Sender: SANDOZ
  Company Number: US-SANDOZ-SDZ2024US077675

PATIENT
  Age: 10 Year
  Sex: Female

DRUGS (2)
  1. OMNITROPE [Suspect]
     Active Substance: SOMATROPIN
     Indication: Product used for unknown indication
     Dosage: N/A N/A 2 DOSE EVERY N/A N/A
     Route: 065
     Dates: start: 20240903
  2. OMNITROPE [Suspect]
     Active Substance: SOMATROPIN
     Indication: Product used for unknown indication
     Dosage: N/A N/A 2 DOSE EVERY N/A N/A
     Route: 065
     Dates: start: 20240903

REACTIONS (5)
  - Injection site discharge [Unknown]
  - Drug level decreased [Unknown]
  - Therapy change [Unknown]
  - Wrong technique in device usage process [Unknown]
  - Incorrect dose administered [Unknown]

NARRATIVE: CASE EVENT DATE: 20240903
